FAERS Safety Report 11881391 (Version 1)
Quarter: 2015Q4

REPORT INFORMATION
  Report Type: Spontaneous
  Country: FR (occurrence: FR)
  Receive Date: 20151231
  Receipt Date: 20151231
  Transmission Date: 20160305
  Serious: Yes (Hospitalization, Other)
  Sender: FDA-Public Use
  Company Number: FR-ACCORD-036582

PATIENT
  Age: 63 Year
  Sex: Female

DRUGS (7)
  1. OXALIPLATIN. [Suspect]
     Active Substance: OXALIPLATIN
     Indication: BILE DUCT ADENOCARCINOMA
  2. CISPLATIN ACCORD [Suspect]
     Active Substance: CISPLATIN
     Indication: BILE DUCT ADENOCARCINOMA
     Dosage: 95 MG ONCE IN SINGLE INTAKE
     Route: 042
     Dates: start: 20150324
  3. METFORMIN [Concomitant]
     Active Substance: METFORMIN HYDROCHLORIDE
  4. EPOETIN ALFA [Concomitant]
     Active Substance: ERYTHROPOIETIN
  5. GEMCITABINE/GEMCITABINE HYDROCHLORIDE [Suspect]
     Active Substance: GEMCITABINE\GEMCITABINE HYDROCHLORIDE
     Indication: BILE DUCT ADENOCARCINOMA
     Route: 042
     Dates: start: 20150324, end: 20150324
  6. VOGALENE [Concomitant]
     Active Substance: METOPIMAZINE
  7. APROVEL [Concomitant]
     Active Substance: IRBESARTAN

REACTIONS (10)
  - Escherichia test positive [None]
  - Septic shock [Recovered/Resolved]
  - Enterobacter test positive [None]
  - Acute kidney injury [None]
  - Haemodialysis [None]
  - Off label use [Unknown]
  - Adverse event [Unknown]
  - Pseudomonas test positive [None]
  - Renal tubular necrosis [Recovered/Resolved]
  - Loss of consciousness [Recovered/Resolved]

NARRATIVE: CASE EVENT DATE: 20150405
